FAERS Safety Report 8209497-2 (Version None)
Quarter: 2012Q1

REPORT INFORMATION
  Report Type: 
  Country: None (occurrence: None)
  Receive Date: 20120314
  Receipt Date: 20120302
  Transmission Date: 20120608
  Serious: Yes (Other)
  Sender: FDA-Public Use
  Company Number: US-JNJFOC-20120102969

PATIENT
  Sex: Female
  Weight: 90.72 kg

DRUGS (31)
  1. FISH OIL [Concomitant]
  2. VITAMIN D [Concomitant]
  3. BENICAR WITH HCT [Concomitant]
  4. FLUTICASONE [Concomitant]
     Route: 045
     Dates: start: 20111012
  5. HYDROCHLOROTHIAZIDE [Concomitant]
  6. LOVAZA [Concomitant]
  7. PERIDEX [Concomitant]
     Dates: start: 20111013
  8. LANSOPRAZOLE [Concomitant]
  9. CYMBALTA [Concomitant]
  10. ZYRTEC [Concomitant]
  11. PREDNISONE TAB [Concomitant]
  12. FLAXSEED OIL [Concomitant]
  13. CALCIUM [Concomitant]
  14. FOLIC ACID [Concomitant]
  15. NEXIUM [Concomitant]
  16. B-VITAMIN COMPLEX [Concomitant]
  17. METOPROLOL SUCCINATE [Concomitant]
     Route: 048
  18. LOSARTAN POTASSIUM [Concomitant]
  19. POTASSIUM GLUCONATE TAB [Concomitant]
  20. ZOLPIDEM [Concomitant]
  21. CALCIUM WITH VITAMIN  D [Concomitant]
  22. SINGULAIR [Concomitant]
     Route: 048
     Dates: start: 20110413
  23. ASTEPRO [Concomitant]
     Route: 045
     Dates: start: 20111012
  24. ETODOLAC [Concomitant]
  25. PREDNISONE TAB [Concomitant]
  26. MULTIVITAMIN [Concomitant]
  27. REMICADE [Suspect]
     Indication: RHEUMATOID ARTHRITIS
     Route: 042
     Dates: start: 20110829
  28. PLAQUENIL [Concomitant]
  29. LEVOCETIRIZINE DIHYDROCHLORIDE [Concomitant]
     Route: 048
     Dates: start: 20110329
  30. CLARINEX [Concomitant]
     Route: 048
     Dates: start: 20110413
  31. METHOTREXATE [Concomitant]

REACTIONS (4)
  - THYROID ADENOMA [None]
  - ACUTE SINUSITIS [None]
  - MASS [None]
  - INFECTION [None]
